FAERS Safety Report 11136128 (Version 1)
Quarter: 2015Q2

REPORT INFORMATION
  Report Type: Spontaneous
  Country: US (occurrence: US)
  Receive Date: 20150526
  Receipt Date: 20150526
  Transmission Date: 20150821
  Serious: Yes (Hospitalization)
  Sender: FDA-Public Use
  Company Number: US-PFIZER INC-2015174189

PATIENT
  Age: 49 Year
  Sex: Male

DRUGS (5)
  1. LEVOTHYROXINE SODIUM. [Suspect]
     Active Substance: LEVOTHYROXINE SODIUM
     Dosage: 200 ?G, 1X/DAY
     Route: 048
     Dates: start: 20141201
  2. LASIX [Suspect]
     Active Substance: FUROSEMIDE
     Dosage: 40 MG, 2X/DAY (AS NEEDED)
     Route: 048
     Dates: start: 20141201
  3. NOVOLOG [Suspect]
     Active Substance: INSULIN ASPART
     Dosage: 100 IU/ML
     Route: 058
     Dates: start: 20150108
  4. PROAIR HFA [Suspect]
     Active Substance: ALBUTEROL SULFATE
     Dosage: 90 ?G, 4X/DAY
     Dates: start: 20141201
  5. FINASTERIDE. [Suspect]
     Active Substance: FINASTERIDE
     Dosage: 5 MG, 1X/DAY
     Route: 048
     Dates: start: 20150126

REACTIONS (2)
  - Coronary artery disease [Unknown]
  - Diabetic neuropathy [Unknown]

NARRATIVE: CASE EVENT DATE: 201501
